FAERS Safety Report 14985787 (Version 2)
Quarter: 2018Q2

REPORT INFORMATION
  Report Type: Spontaneous
  Country: IT (occurrence: IT)
  Receive Date: 20180607
  Receipt Date: 20180620
  Transmission Date: 20180711
  Serious: Yes (Other)
  Sender: FDA-Public Use
  Company Number: IT-JNJFOC-20170207688

PATIENT

DRUGS (2)
  1. IBRUTINIB [Suspect]
     Active Substance: IBRUTINIB
     Indication: MANTLE CELL LYMPHOMA
     Route: 048
  2. IBRUTINIB [Suspect]
     Active Substance: IBRUTINIB
     Indication: MANTLE CELL LYMPHOMA
     Route: 048

REACTIONS (10)
  - Thrombocytopenia [Unknown]
  - Lymphocytosis [Unknown]
  - Drug resistance [Unknown]
  - Atrial fibrillation [Unknown]
  - Diarrhoea [Unknown]
  - Lung infection [Unknown]
  - Herpes zoster [Unknown]
  - Infection [Unknown]
  - Leukocytosis [Unknown]
  - Haemorrhagic disorder [Unknown]
